FAERS Safety Report 10616902 (Version 2)
Quarter: 2015Q2

REPORT INFORMATION
  Report Type: Spontaneous
  Country: US (occurrence: US)
  Receive Date: 20141201
  Receipt Date: 20150511
  Transmission Date: 20150821
  Serious: No
  Sender: FDA-Public Use
  Company Number: US-GLAXOSMITHKLINE-US2014GSK025265

PATIENT
  Sex: Male

DRUGS (2)
  1. VENTOLIN HFA [Suspect]
     Active Substance: ALBUTEROL SULFATE
     Indication: ASTHMA
     Dosage: UNK, PRN
     Dates: start: 2012
  2. PULMICORT TURBUHALER [Concomitant]
     Active Substance: BUDESONIDE

REACTIONS (2)
  - Product quality issue [Unknown]
  - Drug ineffective [Unknown]
